FAERS Safety Report 23204630 (Version 2)
Quarter: 2023Q4

REPORT INFORMATION
  Report Type: Spontaneous
  Country: US (occurrence: US)
  Receive Date: 20231120
  Receipt Date: 20231215
  Transmission Date: 20240110
  Serious: No
  Sender: FDA-Public Use
  Company Number: US-ABBVIE-5497890

PATIENT
  Age: 48 Year
  Sex: Female
  Weight: 75.749 kg

DRUGS (4)
  1. LATISSE [Suspect]
     Active Substance: BIMATOPROST
     Indication: Growth of eyelashes
     Dosage: 0.3 MG/ML, 1 DROP PER EYE, 0.03%
     Route: 065
     Dates: start: 20231023, end: 20231027
  2. LATISSE [Suspect]
     Active Substance: BIMATOPROST
     Dosage: FORM STRENGTH: 0.3 MG/ML, 1 DROP PER EYE, 0.03%
     Route: 065
     Dates: start: 20231014, end: 20231017
  3. LATISSE [Suspect]
     Active Substance: BIMATOPROST
     Dosage: 0.3 MG/ML, 1 DROP PER EYE, 0.03%
     Route: 065
     Dates: start: 20231021, end: 20231021
  4. LATISSE [Suspect]
     Active Substance: BIMATOPROST
     Dosage: FORM STRENGTH- 0.3 MG/ML, 1 DROP PER EYE, 0.03%
     Route: 065
     Dates: start: 20231103, end: 20231105

REACTIONS (7)
  - Eyelid disorder [Not Recovered/Not Resolved]
  - Hordeolum [Recovering/Resolving]
  - Drug ineffective [Not Recovered/Not Resolved]
  - Eyelid pain [Not Recovered/Not Resolved]
  - Eye swelling [Not Recovered/Not Resolved]
  - Ocular hyperaemia [Not Recovered/Not Resolved]
  - Periorbital pain [Not Recovered/Not Resolved]

NARRATIVE: CASE EVENT DATE: 20231017
